FAERS Safety Report 7645177-X (Version None)
Quarter: 2011Q3

REPORT INFORMATION
  Report Type: 
  Country: None (occurrence: None)
  Receive Date: 20110725
  Receipt Date: 20110711
  Transmission Date: 20111222
  Serious: Yes (Life-Threatening, Hospitalization)
  Sender: FDA-Public Use
  Company Number: TPA2011A03958

PATIENT
  Age: 66 Year
  Sex: Male

DRUGS (12)
  1. ADENURIC (FEBUXOSTAT) [Suspect]
     Indication: HYPERURICAEMIA
     Dosage: PER ORAL
     Route: 048
     Dates: start: 20110512, end: 20110714
  2. KETOPROFEN [Suspect]
     Indication: GOUT
     Dosage: PER ORAL
     Route: 048
     Dates: start: 20110509, end: 20110516
  3. PLAVIX [Concomitant]
  4. LANTUS [Concomitant]
  5. LASIX [Concomitant]
  6. NOVOLOG [Concomitant]
  7. AMLODIPINE [Concomitant]
  8. IRBESARTAN [Concomitant]
  9. OMEPRAZOLE [Suspect]
     Dosage: PER ORAL
     Route: 048
     Dates: start: 20110509, end: 20110516
  10. PRAZOSIN HCL [Concomitant]
  11. ATENOLOL NYCOMED (ATENOLOL) [Concomitant]
  12. ATORVASTATIN CALCIUM [Concomitant]

REACTIONS (27)
  - CONDITION AGGRAVATED [None]
  - BLOOD PRESSURE DIASTOLIC DECREASED [None]
  - RENAL FAILURE ACUTE [None]
  - BLISTER [None]
  - TESTICULAR DISORDER [None]
  - FUNGAL INFECTION [None]
  - LYMPHOPENIA [None]
  - DERMATITIS BULLOUS [None]
  - EOSINOPHILIA [None]
  - LUNG DISORDER [None]
  - ODYNOPHAGIA [None]
  - ULCER [None]
  - HYPOXIA [None]
  - BRONCHOSCOPY ABNORMAL [None]
  - STAPHYLOCOCCAL INFECTION [None]
  - TESTICULAR PAIN [None]
  - HAEMODYNAMIC INSTABILITY [None]
  - INFLAMMATION [None]
  - MECHANICAL VENTILATION COMPLICATION [None]
  - HYPERSENSITIVITY [None]
  - HYPERKALAEMIA [None]
  - SKIN ULCER [None]
  - RESPIRATORY DISORDER [None]
  - TOXIC EPIDERMAL NECROLYSIS [None]
  - EJECTION FRACTION DECREASED [None]
  - ERYTHEMA MULTIFORME [None]
  - STEVENS-JOHNSON SYNDROME [None]
